FAERS Safety Report 19353342 (Version 1)
Quarter: 2021Q2

REPORT INFORMATION
  Report Type: Spontaneous
  Country: US (occurrence: US)
  Receive Date: 20210601
  Receipt Date: 20210601
  Transmission Date: 20210717
  Serious: Yes (Other)
  Sender: FDA-Public Use
  Company Number: US-AUROBINDO-AUR-APL-2010-00928

PATIENT
  Age: 74 Year
  Sex: Male

DRUGS (1)
  1. RISPERIDONE. [Suspect]
     Active Substance: RISPERIDONE
     Indication: BIPOLAR DISORDER
     Dosage: UNK
     Route: 065

REACTIONS (10)
  - Extrapyramidal disorder [Unknown]
  - Parkinsonism [Unknown]
  - Contusion [Unknown]
  - Palmomental reflex [Unknown]
  - Cerebral atrophy [Unknown]
  - Tremor [Unknown]
  - Balance disorder [Unknown]
  - Muscle rigidity [Recovered/Resolved]
  - Reduced facial expression [Unknown]
  - Fall [Unknown]
